FAERS Safety Report 9016807 (Version 1)
Quarter: 2013Q1

REPORT INFORMATION
  Report Type: Spontaneous
  Country: FR (occurrence: FR)
  Receive Date: 20130117
  Receipt Date: 20130117
  Transmission Date: 20140127
  Serious: Yes (Hospitalization)
  Sender: FDA-Public Use
  Company Number: FR-ELI_LILLY_AND_COMPANY-FR201301002678

PATIENT
  Age: 26 Year
  Sex: Female

DRUGS (7)
  1. PROZAC [Suspect]
     Dosage: 20 MG, QD
     Route: 048
     Dates: end: 20121005
  2. ALEPSAL [Concomitant]
     Dosage: 50 MG, QD
     Dates: end: 20121005
  3. ALEPSAL [Concomitant]
     Dosage: 15 MG, QD
     Dates: end: 20121005
  4. LIORESAL [Concomitant]
     Dosage: 0.5 MG, UNKNOWN
  5. DIANE [Concomitant]
     Indication: ACNE
     Dosage: 35 UG, QD
  6. RIVOTRIL [Concomitant]
     Indication: EPILEPSY
     Dosage: 13 GTT, QD
     Dates: start: 20120914, end: 20121005
  7. XANAX [Concomitant]

REACTIONS (2)
  - Disturbance in attention [Recovered/Resolved]
  - Convulsion [Recovered/Resolved]
